FAERS Safety Report 8842980 (Version 2)
Quarter: 2013Q1

REPORT INFORMATION
  Report Type: Report from Study
  Country: US (occurrence: US)
  Receive Date: 20121016
  Receipt Date: 20130102
  Transmission Date: 20140127
  Serious: No
  Sender: FDA-Public Use
  Company Number: US-VERTEX PHARMACEUTICAL INC.-2012-022118

PATIENT
  Age: 50 Year
  Sex: Female
  Weight: 77 kg

DRUGS (5)
  1. VX-950 (TELAPREVIR) [Suspect]
     Indication: HEPATITIS C
     Dosage: 750 MG, TID
     Route: 048
     Dates: end: 20120922
  2. PEGASYS [Suspect]
     Indication: HEPATITIS C
     Dosage: 180 ?G, UNK
     Dates: end: 20120922
  3. RIBAVIRIN [Suspect]
     Indication: HEPATITIS C
     Dosage: 200 MG, UNK
     Dates: end: 20120922
  4. SANCTURA [Concomitant]
     Dosage: 20 MG, UNK
  5. DEXILANT [Concomitant]
     Dosage: 30 MG, QD

REACTIONS (10)
  - Vulvovaginal discomfort [Unknown]
  - Oropharyngeal pain [Unknown]
  - Eye pain [Unknown]
  - Lymphadenopathy [Unknown]
  - Sleep disorder [Unknown]
  - Hyperaesthesia [Unknown]
  - Injection site nodule [Unknown]
  - Exfoliative rash [Unknown]
  - Diarrhoea [Recovered/Resolved]
  - Anaemia [Unknown]
